FAERS Safety Report 14624776 (Version 3)
Quarter: 2019Q2

REPORT INFORMATION
  Report Type: Spontaneous
  Country: US (occurrence: US)
  Receive Date: 20180312
  Receipt Date: 20190509
  Transmission Date: 20190711
  Serious: No
  Sender: FDA-Public Use
  Company Number: US-PFIZER INC-2018096312

PATIENT
  Age: 62 Year
  Sex: Female
  Weight: 90 kg

DRUGS (3)
  1. LYRICA [Suspect]
     Active Substance: PREGABALIN
     Indication: NEUROPATHY PERIPHERAL
     Dosage: 150 MG, 2X/DAY
     Route: 048
  2. LYRICA [Suspect]
     Active Substance: PREGABALIN
     Indication: NERVE INJURY
     Dosage: 175 MG, TWICE DAILY
     Route: 048
  3. OMEPRAZOLE. [Concomitant]
     Active Substance: OMEPRAZOLE
     Indication: GASTRIC BYPASS
     Dosage: 20 MG, 1X/DAY
     Route: 048

REACTIONS (2)
  - Urticaria [Not Recovered/Not Resolved]
  - Condition aggravated [Not Recovered/Not Resolved]
